FAERS Safety Report 10181435 (Version 2)
Quarter: 2014Q3

REPORT INFORMATION
  Report Type: Spontaneous
  Country: PT (occurrence: PT)
  Receive Date: 20140519
  Receipt Date: 20140707
  Transmission Date: 20150326
  Serious: Yes (Other)
  Sender: FDA-Public Use
  Company Number: PT-ABBVIE-14P-130-1237386-00

PATIENT
  Age: 60 Year
  Sex: Male

DRUGS (2)
  1. METHOTREXATE [Concomitant]
     Active Substance: METHOTREXATE
     Indication: PRODUCT USED FOR UNKNOWN INDICATION
  2. ADALIMUMAB [Suspect]
     Active Substance: ADALIMUMAB
     Indication: RHEUMATOID ARTHRITIS

REACTIONS (9)
  - Raynaud^s phenomenon [Recovered/Resolved]
  - Photosensitivity reaction [Recovered/Resolved]
  - Systemic lupus erythematosus [Recovered/Resolved]
  - Decreased appetite [Recovered/Resolved]
  - Proteinuria [Recovered/Resolved]
  - Asthenia [Recovered/Resolved]
  - Polyarthritis [Recovered/Resolved]
  - Cutaneous vasculitis [Recovered/Resolved]
  - Butterfly rash [Recovered/Resolved]
